FAERS Safety Report 15073327 (Version 11)
Quarter: 2019Q1

REPORT INFORMATION
  Report Type: Spontaneous
  Country: FR (occurrence: FR)
  Receive Date: 20180627
  Receipt Date: 20190211
  Transmission Date: 20190417
  Serious: Yes (Other)
  Sender: FDA-Public Use
  Company Number: PHHY2018FR027607

PATIENT
  Sex: Female
  Weight: 77 kg

DRUGS (43)
  1. RAMIPRIL. [Suspect]
     Active Substance: RAMIPRIL
     Indication: HYPERTENSION
     Dosage: 2.5 MG, QD (21 WEEKS 1 DAY)
     Route: 048
     Dates: start: 20160930
  2. LEVEMIR [Suspect]
     Active Substance: INSULIN DETEMIR
     Dosage: 10 IU, QD
     Route: 065
     Dates: start: 20170224
  3. FORLAX [Suspect]
     Active Substance: POLYETHYLENE GLYCOL 4000
     Indication: CONSTIPATION
     Dosage: 1 DF, QD
     Route: 065
     Dates: start: 20160930
  4. INSULIN [Suspect]
     Active Substance: INSULIN NOS
     Indication: TYPE 2 DIABETES MELLITUS
     Route: 065
     Dates: start: 20161230, end: 20170224
  5. METHYLDOPA MSD [Suspect]
     Active Substance: METHYLDOPA
     Dosage: 500 MG, QD
     Route: 048
  6. LASIX [Suspect]
     Active Substance: FUROSEMIDE
     Dosage: 50 MG, UNK
     Route: 065
  7. HUMALOG [Suspect]
     Active Substance: INSULIN LISPRO
     Indication: TYPE 2 DIABETES MELLITUS
     Dosage: 1 DF, QD
     Route: 065
     Dates: start: 20170224
  8. METFORMIN [Suspect]
     Active Substance: METFORMIN HYDROCHLORIDE
     Dosage: 850 MG, QD
     Route: 048
     Dates: start: 20170224
  9. TRAMADOL HYDROCHLORIDE. [Suspect]
     Active Substance: TRAMADOL HYDROCHLORIDE
     Dosage: 50 MG, QD
     Route: 065
     Dates: start: 20160930, end: 20170306
  10. LARGACTIL [Suspect]
     Active Substance: CHLORPROMAZINE
     Indication: BIPOLAR I DISORDER
     Dosage: 25 MG, QD
     Route: 065
     Dates: start: 20170720
  11. LASIX [Suspect]
     Active Substance: FUROSEMIDE
     Indication: HYPERTENSION
     Dosage: 40 MG, QD
     Route: 065
     Dates: start: 20170516, end: 20170914
  12. ARIPIPRAZOLE. [Suspect]
     Active Substance: ARIPIPRAZOLE
     Indication: BIPOLAR I DISORDER
     Dosage: 10 MG, QD
     Route: 065
     Dates: start: 20160930
  13. GABAPENTIN. [Suspect]
     Active Substance: GABAPENTIN
     Dosage: 800 MG, QD
     Route: 048
     Dates: start: 20160930
  14. LANTUS [Suspect]
     Active Substance: INSULIN GLARGINE
     Indication: TYPE 2 DIABETES MELLITUS
     Dosage: 20 IU, QD
     Route: 065
     Dates: start: 20170224
  15. FOLIC ACID. [Suspect]
     Active Substance: FOLIC ACID
     Indication: NORMOCHROMIC NORMOCYTIC ANAEMIA
     Dosage: 5 MG, QD
     Route: 065
     Dates: start: 20170313
  16. FUROSEMIDE. [Suspect]
     Active Substance: FUROSEMIDE
     Indication: HYPERTENSION
     Dosage: 40 MG, UNK
     Route: 065
  17. TRAMADOL HYDROCHLORIDE. [Suspect]
     Active Substance: TRAMADOL HYDROCHLORIDE
     Indication: DIABETIC NEUROPATHY
     Dosage: 100 MG, QD
     Route: 065
     Dates: start: 20160930
  18. GABAPENTIN. [Suspect]
     Active Substance: GABAPENTIN
     Dosage: 400 MG, QD
     Route: 048
     Dates: start: 20160930
  19. LAROXYL [Suspect]
     Active Substance: AMITRIPTYLINE HYDROCHLORIDE
     Indication: DIABETIC NEUROPATHY
     Dosage: 2 DF, QD
     Route: 065
     Dates: start: 20160930
  20. ACIDE FOLIQUE [Suspect]
     Active Substance: FOLIC ACID
     Indication: NORMOCHROMIC NORMOCYTIC ANAEMIA
     Dosage: 5 MG, QD
     Route: 065
     Dates: start: 20170224
  21. LOXEN [NICARDIPINE HYDROCHLORIDE] [Suspect]
     Active Substance: NICARDIPINE HYDROCHLORIDE
     Indication: HYPERTENSION
     Dosage: 50 MG, UNK (50MG FORME LP X2/J)
     Route: 065
     Dates: start: 20170313
  22. METFORMIN [Suspect]
     Active Substance: METFORMIN HYDROCHLORIDE
     Indication: TYPE 2 DIABETES MELLITUS
     Dosage: 1700 MG, QD
     Route: 048
     Dates: start: 20160930
  23. FORLAX [Suspect]
     Active Substance: POLYETHYLENE GLYCOL 4000
     Dosage: 1 DF, QD
     Route: 065
     Dates: start: 20170405
  24. PROPRANOLOL HYDROCHLORIDE. [Suspect]
     Active Substance: PROPRANOLOL HYDROCHLORIDE
     Indication: HYPERTENSION
     Dosage: 80 MG, UNK (DRUG INTERVAL DOSAGE OF 1 DAY)
     Route: 065
  25. GLICLAZIDE [Suspect]
     Active Substance: GLICLAZIDE
     Dosage: 120 MG, QD
     Route: 065
     Dates: start: 20170224
  26. FOLINIC ACID [Suspect]
     Active Substance: LEUCOVORIN
     Dosage: 5 MG, QD
     Route: 065
     Dates: start: 20170313
  27. LEVEMIR [Suspect]
     Active Substance: INSULIN DETEMIR
     Indication: TYPE 2 DIABETES MELLITUS
     Dosage: 10 IU, QD
     Route: 065
     Dates: start: 20160930
  28. LABETALOL HCL [Suspect]
     Active Substance: LABETALOL HYDROCHLORIDE
     Indication: HYPERTENSION
     Dosage: 80 MG, QD
     Route: 065
     Dates: start: 20170516
  29. DIFFU-K [Suspect]
     Active Substance: POTASSIUM CHLORIDE
     Dosage: 1200 MG, QD
     Route: 065
     Dates: start: 20170804
  30. METHYLDOPA MSD [Suspect]
     Active Substance: METHYLDOPA
     Indication: HYPERTENSION
     Dosage: 15000 MG, QD
     Route: 048
     Dates: start: 20170720
  31. LARGACTIL [Suspect]
     Active Substance: CHLORPROMAZINE
     Dosage: 1 DF, UNK
     Route: 065
  32. NICARDIPINE [Suspect]
     Active Substance: NICARDIPINE
     Indication: HYPERTENSION
     Dosage: 50 MG, UNK (50 MG FORME LP X2/J)
     Route: 065
     Dates: start: 20170313, end: 20180405
  33. GABAPENTIN. [Suspect]
     Active Substance: GABAPENTIN
     Indication: DIABETIC NEUROPATHY
     Dosage: 80 MG, QD
     Route: 048
     Dates: start: 20160930
  34. FOLINIC ACID [Suspect]
     Active Substance: LEUCOVORIN
     Indication: NORMOCHROMIC NORMOCYTIC ANAEMIA
     Dosage: 5 MG, QD
     Route: 065
     Dates: start: 20170224, end: 20170313
  35. TARDYFERON [Suspect]
     Active Substance: FERROUS SULFATE
     Indication: NORMOCHROMIC NORMOCYTIC ANAEMIA
     Dosage: 1 DF, QD
     Route: 065
     Dates: start: 20170313
  36. DIFFU-K [Suspect]
     Active Substance: POTASSIUM CHLORIDE
     Indication: HYPOKALAEMIA
     Dosage: 3600 MG, QD
     Route: 065
     Dates: start: 20170804
  37. GLICLAZIDE [Suspect]
     Active Substance: GLICLAZIDE
     Indication: TYPE 2 DIABETES MELLITUS
     Dosage: 120 MG, QD
     Route: 065
     Dates: start: 20160930
  38. TRAMADOL HYDROCHLORIDE. [Suspect]
     Active Substance: TRAMADOL HYDROCHLORIDE
     Dosage: 100 MG, QD
     Route: 065
     Dates: start: 20170306
  39. NICOPATCH [Suspect]
     Active Substance: NICOTINE
     Indication: EX-TOBACCO USER
     Dosage: 7 MG, QD
     Route: 065
     Dates: start: 20170224
  40. NICOPATCH [Suspect]
     Active Substance: NICOTINE
     Indication: SMOKING CESSATION THERAPY
     Dosage: 7 MG, QD
     Route: 065
     Dates: start: 20170516
  41. AMOXICILLIN SODIUM [Suspect]
     Active Substance: AMOXICILLIN SODIUM
     Indication: PRODUCT USED FOR UNKNOWN INDICATION
     Dosage: 3 G, QD
     Route: 048
     Dates: start: 20170804, end: 20170811
  42. INSULIN LISPRO [Suspect]
     Active Substance: INSULIN LISPRO
     Indication: TYPE 2 DIABETES MELLITUS
     Dosage: 21 G/M2, QD
     Route: 065
     Dates: start: 20170224
  43. LOXEN L P [Suspect]
     Active Substance: NICARDIPINE HYDROCHLORIDE
     Indication: HYPERTENSION
     Dosage: 1 DF, UNK
     Route: 065
     Dates: start: 20170313

REACTIONS (4)
  - Premature delivery [Unknown]
  - Maternal exposure during pregnancy [Unknown]
  - Exposure during pregnancy [Unknown]
  - Pregnancy [Unknown]

NARRATIVE: CASE EVENT DATE: 2017
